FAERS Safety Report 15043368 (Version 1)
Quarter: 2018Q2

REPORT INFORMATION
  Report Type: Spontaneous
  Country: PT (occurrence: PT)
  Receive Date: 20180621
  Receipt Date: 20180621
  Transmission Date: 20180711
  Serious: Yes (Death, Other)
  Sender: FDA-Public Use
  Company Number: PT-SA-2018SA156044

PATIENT
  Age: 85 Year
  Sex: Female
  Weight: 80 kg

DRUGS (2)
  1. ENOXAPARIN SODIUM. [Suspect]
     Active Substance: ENOXAPARIN SODIUM
     Dosage: 120 MG, QD
     Route: 058
     Dates: start: 20180330
  2. METHYLPREDNISOLONE. [Concomitant]
     Active Substance: METHYLPREDNISOLONE
     Indication: PRODUCT USED FOR UNKNOWN INDICATION

REACTIONS (5)
  - Cardio-respiratory arrest [Fatal]
  - Retroperitoneal haematoma [Fatal]
  - Hypotension [Fatal]
  - Hypovolaemic shock [Fatal]
  - Abdominal pain [Fatal]

NARRATIVE: CASE EVENT DATE: 20180404
